FAERS Safety Report 7076840-X (Version None)
Quarter: 2010Q4

REPORT INFORMATION
  Report Type: 
  Country: None (occurrence: None)
  Receive Date: 20101101
  Receipt Date: 20101021
  Transmission Date: 20110411
  Serious: Yes (Other)
  Sender: FDA-Public Use
  Company Number: US-ENDO PHARMACEUTICALS INC.-SPLN20100113

PATIENT
  Sex: Female

DRUGS (7)
  1. SUPPRELIN LA [Suspect]
     Indication: PRECOCIOUS PUBERTY
     Dosage: 50 MG
     Dates: start: 20100106
  2. VINCRISTINE [Concomitant]
     Indication: NEOPLASM MALIGNANT
     Dosage: UNKNOWN
     Route: 065
  3. VINCRISTINE [Concomitant]
     Dosage: UNKNOWN
     Route: 065
  4. FLUOROURACIL [Concomitant]
     Indication: NEOPLASM MALIGNANT
     Dosage: UNKNOWN
     Route: 065
  5. CISPLATIN [Concomitant]
     Indication: NEOPLASM MALIGNANT
     Dosage: UNKNOWN
     Route: 065
  6. DOXORUBICIN HCL [Concomitant]
     Indication: NEOPLASM MALIGNANT
     Dosage: UNKNOWN
     Route: 065
  7. IRINOTECAN HCL [Concomitant]
     Indication: NEOPLASM MALIGNANT
     Dosage: UNKNOWN
     Route: 065

REACTIONS (2)
  - ALPHA 1 FOETOPROTEIN INCREASED [None]
  - HEPATOBLASTOMA [None]
